FAERS Safety Report 9856395 (Version 3)
Quarter: 2014Q1

REPORT INFORMATION
  Report Type: Spontaneous
  Country: AU (occurrence: AU)
  Receive Date: 20140130
  Receipt Date: 20140303
  Transmission Date: 20141002
  Serious: Yes (Hospitalization)
  Sender: FDA-Public Use
  Company Number: AU-B.I. PHARMACEUTICALS,INC./RIDGEFIELD-2014-BI-03335AU

PATIENT
  Age: 55 Year
  Sex: Male
  Weight: 62 kg

DRUGS (7)
  1. LINAGLIPTIN [Suspect]
     Indication: TYPE 2 DIABETES MELLITUS
     Dosage: 5 MG
     Route: 048
     Dates: start: 20120927, end: 20121220
  2. AVANZA [Concomitant]
     Dosage: 30 MG
     Route: 065
  3. OXYCONTIN [Concomitant]
     Dosage: 320 MG
     Route: 065
  4. OXYNORM [Concomitant]
     Route: 065
  5. VALIUM [Concomitant]
     Dosage: 10 MG
     Route: 065
  6. DIABEX XR [Concomitant]
     Dosage: 1000 MG
     Route: 065
  7. COVERSYL [Concomitant]
     Dosage: 10 MG
     Route: 065

REACTIONS (2)
  - Drug-induced liver injury [Recovered/Resolved]
  - Jaundice cholestatic [Recovered/Resolved]
